FAERS Safety Report 8845824 (Version 1)
Quarter: 2012Q4

REPORT INFORMATION
  Report Type: 
  Country: US (occurrence: US)
  Receive Date: 20121017
  Receipt Date: 20121017
  Transmission Date: 20130627
  Serious: Yes (Hospitalization)
  Sender: FDA-Public Use
  Company Number: US-ROCHE-GNE091297

PATIENT
  Age: 15 Year
  Sex: Male
  Weight: 58.66 kg

DRUGS (9)
  1. NUTROPIN AQ [Suspect]
     Indication: DWARFISM
     Route: 065
  2. NUTROPIN AQ [Suspect]
     Route: 058
     Dates: start: 19980616, end: 19980711
  3. THEO-DUR [Concomitant]
     Route: 065
  4. ACCOLATE [Concomitant]
     Route: 065
  5. VANCERIL [Concomitant]
     Route: 055
  6. RHINOCORT [Concomitant]
  7. MAXAIR [Concomitant]
  8. HUMULIN N [Concomitant]
  9. HUMULIN R [Concomitant]

REACTIONS (7)
  - Benign intracranial hypertension [Recovered/Resolved]
  - Papilloedema [Unknown]
  - Headache [Unknown]
  - Vomiting [Unknown]
  - Insulin resistance [Unknown]
  - Intracranial pressure increased [Unknown]
  - Hyperglycaemia [Unknown]
